FAERS Safety Report 8890779 (Version 1)
Quarter: 2012Q4

REPORT INFORMATION
  Report Type: 
  Country: US (occurrence: US)
  Receive Date: 20121107
  Receipt Date: 20121107
  Transmission Date: 20130627
  Serious: Yes (Other)
  Sender: FDA-Public Use
  Company Number: US-JNJFOC-20121017004

PATIENT
  Sex: Female

DRUGS (3)
  1. BENADRYL [Suspect]
     Indication: PRURITUS
     Dosage: every alternate night as needed
     Route: 048
  2. DIPHENHYDRAMINE HYDROCHLORIDE [Suspect]
     Indication: PRURITUS
     Dosage: every alternate night as needed
     Route: 048
  3. BENADRYL [Suspect]
     Indication: PRURITUS
     Route: 061
     Dates: start: 20121025

REACTIONS (3)
  - Asthma [Unknown]
  - Overdose [Unknown]
  - Off label use [Unknown]
